FAERS Safety Report 5391627-1 (Version None)
Quarter: 2007Q3

REPORT INFORMATION
  Report Type: 
  Country: None (occurrence: None)
  Receive Date: 20070717
  Receipt Date: 20070702
  Transmission Date: 20080115
  Serious: No
  Sender: FDA-Public Use
  Company Number: 2007P1000229

PATIENT
  Age: 47 Year
  Sex: Male

DRUGS (7)
  1. BUSULFAN (BUSULFAN) [Suspect]
     Indication: STEM CELL TRANSPLANT
     Dosage: 4 ML; QID; IV
     Route: 042
     Dates: start: 20070111, end: 20070114
  2. MELPHALAN [Concomitant]
  3. CLADRIBINE [Concomitant]
  4. PHENYTOIN [Concomitant]
  5. LENOGRASTIM [Concomitant]
  6. CYCLOSPORINE [Concomitant]
  7. METHOTREXATE [Concomitant]

REACTIONS (6)
  - CARDIAC FAILURE [None]
  - LIVER DISORDER [None]
  - RENAL DISORDER [None]
  - STAPHYLOCOCCAL SEPSIS [None]
  - STOMATITIS [None]
  - TRANSPLANT FAILURE [None]
